FAERS Safety Report 4340155-0 (Version None)
Quarter: 2004Q2

REPORT INFORMATION
  Report Type: 
  Country: None (occurrence: None)
  Receive Date: 20040416
  Receipt Date: 20040416
  Transmission Date: 20050107
  Serious: No
  Sender: FDA-Public Use
  Company Number: None

PATIENT
  Age: 30 Year
  Sex: Male
  Weight: 83.9154 kg

DRUGS (2)
  1. ACEBUTOLOL [Suspect]
     Indication: HYPERTENSION
     Dosage: 1 TIME ORAL
     Route: 048
     Dates: start: 20031001, end: 20031201
  2. ACEBUTOLOL HCL [Suspect]
     Dosage: 1 TIME ORAL
     Route: 048
     Dates: start: 20031201, end: 20040301

REACTIONS (3)
  - BLOOD PRESSURE INCREASED [None]
  - DRUG EFFECT DECREASED [None]
  - PHARMACEUTICAL PRODUCT COMPLAINT [None]
